FAERS Safety Report 10550833 (Version 2)
Quarter: 2014Q4

REPORT INFORMATION
  Report Type: Report from Study
  Country: US (occurrence: US)
  Receive Date: 20141029
  Receipt Date: 20141101
  Transmission Date: 20150529
  Serious: Yes (Death, Other)
  Sender: FDA-Public Use
  Company Number: PHEH2014US021563

PATIENT
  Age: 72 Year
  Sex: Male
  Weight: 59.4 kg

DRUGS (8)
  1. NORCO [Concomitant]
     Active Substance: ACETAMINOPHEN\HYDROCODONE BITARTRATE
     Indication: PAIN
     Dosage: 71325 MG, QID (PRN)
     Route: 048
  2. ACSORBIC ACID [Concomitant]
     Indication: NUTRITIONAL SUPPLEMENTATION
     Dosage: 500 MG, QD
     Route: 048
  3. ZYKADIA [Suspect]
     Active Substance: CERITINIB
     Indication: LUNG NEOPLASM MALIGNANT
  4. METFORMIN [Concomitant]
     Active Substance: METFORMIN HYDROCHLORIDE
     Indication: DIABETES MELLITUS
     Dosage: 1500 MG, BID
     Route: 048
  5. TRAMADOL [Concomitant]
     Active Substance: TRAMADOL
     Indication: PAIN
     Dosage: 50 MG, TID (PRN)
     Route: 048
  6. LASIX [Concomitant]
     Active Substance: FUROSEMIDE
     Indication: POLYURIA
     Dosage: 40 MG, QD
     Route: 048
  7. ZYKADIA [Suspect]
     Active Substance: CERITINIB
     Indication: BRONCHIAL CARCINOMA
     Dosage: 750 MG, DAILY
     Route: 048
     Dates: start: 20140731
  8. ENALAPRIL MALEATE. [Concomitant]
     Active Substance: ENALAPRIL MALEATE
     Indication: HYPERTENSION
     Dosage: 10 MG, QD
     Route: 048

REACTIONS (18)
  - Lung neoplasm malignant [Fatal]
  - Diabetic ketoacidosis [Recovered/Resolved]
  - White blood cell count increased [Unknown]
  - Malaise [Unknown]
  - Respiratory arrest [Unknown]
  - Hypertension [Unknown]
  - Hyponatraemia [Unknown]
  - Empyema [Unknown]
  - Hypoxia [Unknown]
  - Deep vein thrombosis [Unknown]
  - Neutrophil count increased [Unknown]
  - Acute kidney injury [Unknown]
  - Acute respiratory failure [Fatal]
  - Pneumonia [Fatal]
  - Blood glucose increased [Unknown]
  - Respiratory distress [Unknown]
  - Malignant pleural effusion [Fatal]
  - Chronic respiratory failure [Unknown]

NARRATIVE: CASE EVENT DATE: 20141006
